FAERS Safety Report 9276617 (Version 1)
Quarter: 2013Q2

REPORT INFORMATION
  Report Type: Spontaneous
  Country: US (occurrence: None)
  Receive Date: 20130501
  Receipt Date: 20130501
  Transmission Date: 20140414
  Serious: Yes (Hospitalization)
  Sender: FDA-Public Use
  Company Number: 1686118

PATIENT
  Age: 18 Year
  Sex: Female

DRUGS (1)
  1. KETAMINE HYDROCHLORIDE [Suspect]
     Route: 055

REACTIONS (1)
  - Biliary dilatation [None]
